FAERS Safety Report 9115680 (Version 2)
Quarter: 2013Q2

REPORT INFORMATION
  Report Type: Spontaneous
  Country: US (occurrence: US)
  Receive Date: 20130225
  Receipt Date: 20130620
  Transmission Date: 20140414
  Serious: No
  Sender: FDA-Public Use
  Company Number: US-PFIZER INC-2013065447

PATIENT
  Age: 61 Year
  Sex: Female
  Weight: 55.33 kg

DRUGS (6)
  1. THERMACARE NECK, SHOULDER + WRIST [Suspect]
     Indication: MUSCULOSKELETAL PAIN
     Dosage: UNK
  2. ANBESOL REGULAR STRENGTH GEL [Suspect]
     Indication: GINGIVAL PAIN
     Dosage: UNK
  3. ANBESOL REGULAR STRENGTH GEL [Suspect]
     Indication: OROPHARYNGEAL PAIN
  4. LIPITOR [Suspect]
     Indication: BLOOD CHOLESTEROL INCREASED
     Dosage: 10 MG, 1X/DAY
  5. VENLAFAXINE HYDROCHLORIDE [Concomitant]
     Indication: FIBROMYALGIA
     Dosage: 75 MG, 1X/DAY
  6. ATENOLOL [Concomitant]
     Indication: TREMOR
     Dosage: 50 MG, 1X/DAY

REACTIONS (12)
  - Product quality issue [Unknown]
  - Device ineffective [Unknown]
  - Device misuse [Unknown]
  - Gastritis [Unknown]
  - Aphthous stomatitis [Unknown]
  - Weight decreased [Unknown]
  - Eating disorder [Unknown]
  - Speech disorder [Unknown]
  - Abdominal discomfort [Unknown]
  - Malaise [Unknown]
  - High density lipoprotein decreased [Unknown]
  - Blood cholesterol increased [Unknown]
